FAERS Safety Report 4754007-5 (Version None)
Quarter: 2005Q3

REPORT INFORMATION
  Report Type: 
  Country: None (occurrence: None)
  Receive Date: 20050826
  Receipt Date: 20050302
  Transmission Date: 20060218
  Serious: Yes (Hospitalization, Disabling, Other)
  Sender: FDA-Public Use
  Company Number: US-MERCK-0503USA00669

PATIENT
  Age: 60 Year
  Sex: Male
  Weight: 82 kg

DRUGS (6)
  1. VIOXX [Suspect]
     Indication: ARTHRITIS
     Route: 048
     Dates: start: 20020101, end: 20040701
  2. VIOXX [Suspect]
     Route: 048
  3. ZOCOR [Concomitant]
     Indication: BLOOD CHOLESTEROL INCREASED
     Route: 065
  4. INSULIN [Concomitant]
     Indication: DIABETES MELLITUS
     Route: 065
  5. TOPROL-XL [Concomitant]
     Indication: HYPERTENSION
     Route: 065
  6. NEXIUM [Concomitant]
     Indication: GASTROINTESTINAL DISORDER
     Route: 065

REACTIONS (62)
  - ANAEMIA [None]
  - ANGINA PECTORIS [None]
  - ARTERIAL STENOSIS LIMB [None]
  - ASTHENIA [None]
  - ATHEROSCLEROSIS [None]
  - BACK INJURY [None]
  - BLOOD CREATINE PHOSPHOKINASE INCREASED [None]
  - BURNING SENSATION [None]
  - CAROTID ARTERY STENOSIS [None]
  - CELLULITIS [None]
  - CEREBROVASCULAR ACCIDENT [None]
  - CONSTIPATION [None]
  - COUGH [None]
  - DEEP VEIN THROMBOSIS [None]
  - DIABETES MELLITUS [None]
  - DIABETIC NEUROPATHY [None]
  - DIFFICULTY IN WALKING [None]
  - DILATATION ATRIAL [None]
  - DYSPNOEA [None]
  - DYSPNOEA EXERTIONAL [None]
  - FALL [None]
  - FLANK PAIN [None]
  - GALLBLADDER POLYP [None]
  - GAMMOPATHY [None]
  - GASTROOESOPHAGEAL REFLUX DISEASE [None]
  - GLAUCOMA [None]
  - GOUT [None]
  - HAEMATOCHEZIA [None]
  - HAEMATURIA [None]
  - HEMIPARESIS [None]
  - HEPATOMEGALY [None]
  - LEUKOPENIA [None]
  - LICHEN PLANUS [None]
  - LOSS OF CONSCIOUSNESS [None]
  - MICTURITION DISORDER [None]
  - MICTURITION URGENCY [None]
  - MITRAL VALVE INCOMPETENCE [None]
  - MONOCYTE COUNT INCREASED [None]
  - MYALGIA [None]
  - MYCETOMA MYCOTIC [None]
  - MYOCARDIAL INFARCTION [None]
  - MYOPATHY [None]
  - NAIL TINEA [None]
  - NEUROPATHIC PAIN [None]
  - NEUROPATHY PERIPHERAL [None]
  - OEDEMA PERIPHERAL [None]
  - ONYCHOMYCOSIS [None]
  - PARALYSIS [None]
  - POLYNEUROPATHY [None]
  - POSTNASAL DRIP [None]
  - RENAL DISORDER [None]
  - RHINORRHOEA [None]
  - ROAD TRAFFIC ACCIDENT [None]
  - SKIN DISORDER [None]
  - SYNCOPE [None]
  - THROMBOSIS [None]
  - URINARY BLADDER POLYP [None]
  - URINE ODOUR ABNORMAL [None]
  - VASCULAR INJURY [None]
  - VENTRICULAR HYPERTROPHY [None]
  - WEIGHT DECREASED [None]
  - WHITE BLOOD CELL COUNT DECREASED [None]
